FAERS Safety Report 5820674-8 (Version None)
Quarter: 2008Q3

REPORT INFORMATION
  Report Type: 
  Country: None (occurrence: None)
  Receive Date: 20080724
  Receipt Date: 20080206
  Transmission Date: 20090109
  Serious: No
  Sender: FDA-Public Use
  Company Number: A0707828A

PATIENT
  Sex: Female

DRUGS (9)
  1. AVANDIA [Suspect]
     Dosage: 4MG TWICE PER DAY
     Route: 048
     Dates: start: 20060901
  2. MOBIC [Concomitant]
  3. TOPROL-XL [Concomitant]
  4. ALPRAZOLAM [Concomitant]
  5. LORTAB [Concomitant]
  6. LEVOTHYROXINE SODIUM [Concomitant]
  7. HYDROCHLOROTHIAZIDE [Concomitant]
  8. CYMBALTA [Concomitant]
  9. CELEBREX [Concomitant]

REACTIONS (1)
  - BLOOD GLUCOSE INCREASED [None]
